FAERS Safety Report 20231792 (Version 1)
Quarter: 2021Q4

REPORT INFORMATION
  Report Type: Spontaneous
  Country: US (occurrence: None)
  Receive Date: 20211223
  Receipt Date: 20211223
  Transmission Date: 20220303
  Serious: Yes (Death)
  Sender: FDA-Public Use
  Company Number: None

PATIENT
  Age: 93 Year
  Sex: Female
  Weight: 65.3 kg

DRUGS (14)
  1. CIPROFLOXACIN [Suspect]
     Active Substance: CIPROFLOXACIN
     Indication: Abdominal infection
     Dosage: FREQUENCY : TWICE A DAY;?
     Route: 042
     Dates: start: 20210303, end: 20210305
  2. lisinopril 10 mg daily [Concomitant]
     Dates: start: 20210225, end: 20210305
  3. levothyroxine 50 mcg daily [Concomitant]
     Dates: start: 20200909, end: 20210305
  4. aspirin EC 81 mg daily [Concomitant]
     Dates: start: 20210225, end: 20210305
  5. heparin 5000 units Q8h [Concomitant]
     Dates: start: 20210226, end: 20210305
  6. indomethacin 100 mg supp x1 [Concomitant]
     Dates: start: 20210302, end: 20210302
  7. pantoprazole 40 mg IV BID [Concomitant]
     Dates: start: 20210303, end: 20210305
  8. sucralfate 1 gm TID [Concomitant]
     Dates: start: 20210303, end: 20210305
  9. Dextrose 25% [Concomitant]
     Dates: start: 20210303, end: 20210305
  10. sugammadex 200 mg x1 [Concomitant]
     Dates: start: 20210302, end: 20210302
  11. rocuronium 60 mg x1 [Concomitant]
     Dates: start: 20210302, end: 20210302
  12. ondansetron 4 mg daily [Concomitant]
     Dates: start: 20210301, end: 20210304
  13. glucagon 0.5 mg [Concomitant]
  14. FENTANYL [Concomitant]
     Active Substance: FENTANYL
     Dates: start: 20210302, end: 20210302

REACTIONS (1)
  - Hypoglycaemia [None]

NARRATIVE: CASE EVENT DATE: 20210304
